FAERS Safety Report 24465443 (Version 1)
Quarter: 2024Q4

REPORT INFORMATION
  Report Type: Report from Study
  Country: US (occurrence: US)
  Receive Date: 20241018
  Receipt Date: 20241018
  Transmission Date: 20250114
  Serious: No
  Sender: ROCHE
  Company Number: US-ROCHE-3527373

PATIENT
  Sex: Female

DRUGS (3)
  1. XOLAIR [Suspect]
     Active Substance: OMALIZUMAB
     Indication: Idiopathic urticaria
     Dosage: LAST INJECTION: 05/JAN/2023?ANTICIPATED DATE OF TREATMENT: 02/FEB/2023
     Route: 058
  2. XOLAIR [Suspect]
     Active Substance: OMALIZUMAB
     Indication: Pruritus
  3. MONTELUKAST [Concomitant]
     Active Substance: MONTELUKAST

REACTIONS (1)
  - Cough [Unknown]
